FAERS Safety Report 6692076-6 (Version None)
Quarter: 2010Q2

REPORT INFORMATION
  Report Type: 
  Country: None (occurrence: None)
  Receive Date: 20100422
  Receipt Date: 20100326
  Transmission Date: 20101027
  Serious: Yes (Hospitalization)
  Sender: FDA-Public Use
  Company Number: FR-BRISTOL-MYERS SQUIBB COMPANY-15066699

PATIENT
  Age: 68 Year
  Sex: Male

DRUGS (3)
  1. AZACTAM [Suspect]
     Dosage: POWDER AND SOLVENT FOR SOLN FOR INJ/1000MG
     Route: 042
     Dates: start: 20090909, end: 20090919
  2. AMOXICILLIN AND CLAVULANATE POTASSIUM [Suspect]
     Indication: PYREXIA
     Route: 048
     Dates: start: 20090905, end: 20090908
  3. CIPROFLOXACIN HCL [Suspect]
     Dosage: INJ
     Route: 042
     Dates: start: 20090909, end: 20090919

REACTIONS (3)
  - FEBRILE NEUTROPENIA [None]
  - RASH [None]
  - RENAL FAILURE ACUTE [None]
